FAERS Safety Report 22215892 (Version 1)
Quarter: 2023Q2

REPORT INFORMATION
  Report Type: Spontaneous
  Country: US (occurrence: US)
  Receive Date: 20230417
  Receipt Date: 20230417
  Transmission Date: 20230722
  Serious: No
  Sender: FDA-Public Use
  Company Number: US-drreddys-SPO/USA/23/0163081

PATIENT
  Age: 20 Year

DRUGS (3)
  1. ZENATANE [Suspect]
     Active Substance: ISOTRETINOIN
     Indication: Product used for unknown indication
     Dosage: RMA ISSUE DATE: 06 JUNE 2022 05:13:25 PM, 22 JULY 2022 03:51:51 PM, 26 AUGUST 2022 03:53:02 PM, 30 S
  2. ZENATANE [Suspect]
     Active Substance: ISOTRETINOIN
     Dosage: RMA ISSUE DATE : 08 APRIL 2022 03:06:50 PM, 23 DECEMBER 2022 10:52:14 AM
  3. ZENATANE [Suspect]
     Active Substance: ISOTRETINOIN
     Dosage: RMA ISSUE DATE: 06 MAY 2022 05:13:25 PM, 22 JULY 2022 03:51:51 PM, 02 NOVEMBER 2022 01:14:39 PM

REACTIONS (1)
  - Treatment noncompliance [Unknown]
